FAERS Safety Report 8088757-2 (Version None)
Quarter: 2012Q1

REPORT INFORMATION
  Report Type: 
  Country: None (occurrence: None)
  Receive Date: 20120128
  Receipt Date: 20110608
  Transmission Date: 20120608
  Serious: No
  Sender: FDA-Public Use
  Company Number: US-ABBOTT-11P-163-0731062-00

PATIENT
  Age: 31 Year
  Sex: Male

DRUGS (10)
  1. SIMVASTATIN [Concomitant]
     Indication: BLOOD CHOLESTEROL INCREASED
  2. MULTI-VITAMINS [Concomitant]
     Indication: PRODUCT USED FOR UNKNOWN INDICATION
  3. NOVALOG INSULIN PUMP [Concomitant]
     Indication: DIABETES MELLITUS
  4. LISINOPRIL [Concomitant]
     Indication: HYPERTENSION
  5. HYDROCHLOROTHIAZIDE [Concomitant]
     Indication: RENAL FAILURE CHRONIC
  6. ZYRTEC [Concomitant]
     Indication: HYPERSENSITIVITY
  7. VITAMIN D [Concomitant]
     Indication: PRODUCT USED FOR UNKNOWN INDICATION
  8. AMLODIPINE [Concomitant]
     Indication: HYPERTENSION
  9. FISH OIL [Concomitant]
     Indication: PRODUCT USED FOR UNKNOWN INDICATION
  10. HUMIRA [Suspect]
     Indication: PSORIASIS
     Dates: start: 20110401

REACTIONS (3)
  - COUGH [None]
  - RHINORRHOEA [None]
  - OROPHARYNGEAL PAIN [None]
